FAERS Safety Report 6651010-5 (Version None)
Quarter: 2010Q1

REPORT INFORMATION
  Report Type: 
  Country: None (occurrence: None)
  Receive Date: 20100324
  Receipt Date: 20100312
  Transmission Date: 20100710
  Serious: Yes (Hospitalization)
  Sender: FDA-Public Use
  Company Number: 2009-201106-NL

PATIENT
  Age: 25 Year
  Sex: Female
  Weight: 129.7287 kg

DRUGS (1)
  1. NUVARING [Suspect]
     Indication: CONTRACEPTION
     Dates: end: 20070716

REACTIONS (13)
  - AMENORRHOEA [None]
  - ARTHRALGIA [None]
  - BLOOD HOMOCYSTEINE INCREASED [None]
  - CARDIOMEGALY [None]
  - HIATUS HERNIA [None]
  - HYPERCOAGULATION [None]
  - MAJOR DEPRESSION [None]
  - MENSTRUATION IRREGULAR [None]
  - PULMONARY EMBOLISM [None]
  - SMEAR CERVIX ABNORMAL [None]
  - THROMBOPHLEBITIS [None]
  - VULVOVAGINAL MYCOTIC INFECTION [None]
  - WEIGHT ABNORMAL [None]
